FAERS Safety Report 25760470 (Version 1)
Quarter: 2025Q3

REPORT INFORMATION
  Report Type: Spontaneous
  Country: US (occurrence: US)
  Receive Date: 20250904
  Receipt Date: 20250904
  Transmission Date: 20251021
  Serious: Yes (Life-Threatening, Other)
  Sender: PFIZER
  Company Number: US-PFIZER INC-PV202500106052

PATIENT
  Age: 57 Year
  Sex: Female

DRUGS (3)
  1. FENTANYL CITRATE [Suspect]
     Active Substance: FENTANYL CITRATE
  2. OXYCODONE [Concomitant]
     Active Substance: OXYCODONE
  3. VALPROIC ACID [Concomitant]
     Active Substance: VALPROIC ACID
     Indication: Psychiatric symptom

REACTIONS (1)
  - Toxic leukoencephalopathy [Recovering/Resolving]
